FAERS Safety Report 15620482 (Version 5)
Quarter: 2019Q3

REPORT INFORMATION
  Report Type: Report from Study
  Country: CA (occurrence: CA)
  Receive Date: 20181115
  Receipt Date: 20190806
  Transmission Date: 20191004
  Serious: Yes (Death, Other)
  Sender: FDA-Public Use
  Company Number: CA-ROCHE-1749570

PATIENT
  Age: 67 Year
  Sex: Female
  Weight: 62 kg

DRUGS (19)
  1. AMLODIPINE [Concomitant]
     Active Substance: AMLODIPINE BESYLATE
     Indication: OFF LABEL USE
     Route: 065
  2. ROSUVASTATIN. [Concomitant]
     Active Substance: ROSUVASTATIN
     Indication: OFF LABEL USE
     Route: 065
  3. BABY ASPIRIN [Concomitant]
     Active Substance: ASPIRIN
     Indication: OFF LABEL USE
     Route: 065
  4. ASA [Concomitant]
     Active Substance: ASPIRIN
     Indication: OFF LABEL USE
     Dosage: EVERY SECOND DAY
     Route: 065
  5. LEVOTHYROXIN [Concomitant]
     Active Substance: LEVOTHYROXINE
     Indication: OFF LABEL USE
  6. ACTEMRA [Suspect]
     Active Substance: TOCILIZUMAB
     Indication: NEUROMYELITIS OPTICA SPECTRUM DISORDER
     Route: 042
     Dates: start: 20150819, end: 20180926
  7. ACTEMRA [Suspect]
     Active Substance: TOCILIZUMAB
     Route: 042
     Dates: start: 201708
  8. METHYLPREDNISOLONE. [Suspect]
     Active Substance: METHYLPREDNISOLONE
     Indication: PREMEDICATION
     Route: 042
     Dates: start: 20150323
  9. PLAVIX [Concomitant]
     Active Substance: CLOPIDOGREL BISULFATE
     Indication: OFF LABEL USE
     Route: 065
  10. DIPHENHYDRAMINE HYDROCHLORIDE. [Concomitant]
     Active Substance: DIPHENHYDRAMINE HYDROCHLORIDE
     Indication: OFF LABEL USE
     Route: 048
     Dates: start: 20150323
  11. ACTEMRA [Suspect]
     Active Substance: TOCILIZUMAB
     Route: 042
     Dates: start: 20170315
  12. ACTEMRA [Suspect]
     Active Substance: TOCILIZUMAB
     Route: 042
     Dates: start: 20170607
  13. RITUXAN [Suspect]
     Active Substance: RITUXIMAB
     Indication: NEUROMYELITIS OPTICA SPECTRUM DISORDER
     Route: 042
     Dates: start: 20150323
  14. METHYLPREDNISOLONE. [Suspect]
     Active Substance: METHYLPREDNISOLONE
     Indication: OFF LABEL USE
  15. ACETAMINOPHEN. [Concomitant]
     Active Substance: ACETAMINOPHEN
     Indication: OFF LABEL USE
     Route: 048
     Dates: start: 20150323
  16. ACTEMRA [Suspect]
     Active Substance: TOCILIZUMAB
     Indication: OFF LABEL USE
     Route: 042
     Dates: start: 20170118
  17. ACTEMRA [Suspect]
     Active Substance: TOCILIZUMAB
     Route: 042
     Dates: start: 201708
  18. RITUXAN [Suspect]
     Active Substance: RITUXIMAB
     Indication: OFF LABEL USE
  19. PREDNISONE. [Concomitant]
     Active Substance: PREDNISONE
     Indication: OFF LABEL USE

REACTIONS (37)
  - Decreased appetite [Unknown]
  - Death [Fatal]
  - Hypoaesthesia [Recovered/Resolved]
  - Heart rate decreased [Unknown]
  - Bronchitis [Not Recovered/Not Resolved]
  - Angina pectoris [Unknown]
  - Chest pain [Unknown]
  - Asthenia [Unknown]
  - Neuralgia [Not Recovered/Not Resolved]
  - Chest pain [Not Recovered/Not Resolved]
  - Blood pressure systolic increased [Unknown]
  - Urinary tract infection [Unknown]
  - Nausea [Unknown]
  - Pain [Not Recovered/Not Resolved]
  - Chest discomfort [Unknown]
  - Malaise [Not Recovered/Not Resolved]
  - Myalgia [Unknown]
  - Pain in extremity [Unknown]
  - Hypertension [Unknown]
  - Arterial occlusive disease [Unknown]
  - Neurological symptom [Unknown]
  - Balance disorder [Recovering/Resolving]
  - Somnolence [Unknown]
  - Influenza like illness [Unknown]
  - Musculoskeletal stiffness [Not Recovered/Not Resolved]
  - Arthralgia [Unknown]
  - Rheumatoid arthritis [Not Recovered/Not Resolved]
  - Abdominal pain [Recovered/Resolved]
  - Off label use [Unknown]
  - Headache [Unknown]
  - Tooth fracture [Unknown]
  - Microvascular coronary artery disease [Unknown]
  - Intentional product use issue [Unknown]
  - Paraesthesia [Recovered/Resolved]
  - Weight decreased [Unknown]
  - Gastrointestinal pain [Recovering/Resolving]
  - Malaise [Unknown]

NARRATIVE: CASE EVENT DATE: 2016
